FAERS Safety Report 24627484 (Version 2)
Quarter: 2024Q4

REPORT INFORMATION
  Report Type: Spontaneous
  Country: BG (occurrence: BG)
  Receive Date: 20241116
  Receipt Date: 20241206
  Transmission Date: 20250115
  Serious: Yes (Other)
  Sender: MACLEODS
  Company Number: BG-BDA-24872

PATIENT

DRUGS (4)
  1. METFORMIN [Suspect]
     Active Substance: METFORMIN HYDROCHLORIDE
     Indication: Type 2 diabetes mellitus
     Route: 065
     Dates: start: 2015, end: 2017
  2. METFORMIN [Suspect]
     Active Substance: METFORMIN HYDROCHLORIDE
     Route: 065
     Dates: start: 2021, end: 2022
  3. DAPAGLIFLOZIN PROPANEDIOL\METFORMIN HYDROCHLORIDE [Suspect]
     Active Substance: DAPAGLIFLOZIN PROPANEDIOL\METFORMIN HYDROCHLORIDE
     Indication: Type 2 diabetes mellitus
     Dosage: DAPAGLIFLOZIN/METFORMIN HYDROCHLORIDE 5 MG/1000 MG  TWICE DAILY
     Route: 065
     Dates: start: 2017, end: 2021
  4. GLIMEPIRIDE [Concomitant]
     Active Substance: GLIMEPIRIDE
     Indication: Type 2 diabetes mellitus
     Route: 065
     Dates: start: 2021, end: 2022

REACTIONS (3)
  - Basal cell carcinoma [Unknown]
  - Malignant neoplasm progression [Unknown]
  - Manufacturing materials contamination [Unknown]

NARRATIVE: CASE EVENT DATE: 20150101
